FAERS Safety Report 5467348-3 (Version None)
Quarter: 2007Q3

REPORT INFORMATION
  Report Type: 
  Country: None (occurrence: None)
  Receive Date: 20070925
  Receipt Date: 20070913
  Transmission Date: 20080115
  Serious: Yes (Hospitalization)
  Sender: FDA-Public Use
  Company Number: GB-PFIZER INC-2007016033

PATIENT
  Sex: Male
  Weight: 74 kg

DRUGS (10)
  1. RIFABUTIN [Suspect]
     Indication: MYCOBACTERIUM AVIUM COMPLEX INFECTION
     Route: 048
  2. RIFABUTIN [Suspect]
     Indication: MENINGITIS TUBERCULOUS
  3. FLUCONAZOLE [Concomitant]
     Indication: HIV TEST
     Dosage: DAILY DOSE:400MG
     Route: 048
  4. FLUCONAZOLE [Concomitant]
     Indication: MENINGITIS STREPTOCOCCAL
  5. ABACAVIR SULFATE/LAMIVUDINE [Concomitant]
     Route: 048
  6. ISONIAZID [Concomitant]
     Route: 048
     Dates: start: 20060101, end: 20070201
  7. LEVETIRACETAM [Concomitant]
     Route: 048
  8. PYRIDOXINE HCL [Concomitant]
     Route: 048
     Dates: start: 20060101, end: 20070201
  9. PREDNISOLONE [Concomitant]
     Route: 048
  10. EFAVIRENZ [Concomitant]
     Route: 048

REACTIONS (4)
  - ENDOPHTHALMITIS [None]
  - OCULAR HYPERAEMIA [None]
  - UVEITIS [None]
  - VITRITIS [None]
